FAERS Safety Report 10581719 (Version 2)
Quarter: 2014Q4

REPORT INFORMATION
  Report Type: Spontaneous
  Country: US (occurrence: US)
  Receive Date: 20141113
  Receipt Date: 20141217
  Transmission Date: 20150529
  Serious: Yes (Other)
  Sender: FDA-Public Use
  Company Number: US-BAYER-2014-165731

PATIENT
  Sex: Female
  Weight: 49.89 kg

DRUGS (1)
  1. BETASERON [Suspect]
     Active Substance: INTERFERON BETA-1B
     Indication: SECONDARY PROGRESSIVE MULTIPLE SCLEROSIS
     Dosage: UNK
     Dates: start: 2000, end: 2009

REACTIONS (4)
  - Injection site mass [None]
  - Multiple sclerosis relapse [None]
  - Gait disturbance [None]
  - Injection site infection [None]

NARRATIVE: CASE EVENT DATE: 2005
